FAERS Safety Report 11184723 (Version 4)
Quarter: 2015Q4

REPORT INFORMATION
  Report Type: Spontaneous
  Country: US (occurrence: US)
  Receive Date: 20150612
  Receipt Date: 20151114
  Transmission Date: 20160304
  Serious: Yes (Other)
  Sender: FDA-Public Use
  Company Number: US-RB-078045-15

PATIENT
  Age: 41 Year
  Sex: Female
  Weight: 54 kg

DRUGS (1)
  1. DELSYM [Suspect]
     Active Substance: DEXTROMETHORPHAN
     Indication: COUGH
     Dosage: 5 ML, UNK
     Route: 065

REACTIONS (38)
  - Spinal cord herniation [Unknown]
  - Infection [Unknown]
  - Condition aggravated [Recovered/Resolved]
  - Dehydration [Unknown]
  - Laceration [Recovered/Resolved]
  - Facial bones fracture [Recovered/Resolved]
  - Wheezing [Unknown]
  - Nervousness [Unknown]
  - Nasal turbinate hypertrophy [Recovered/Resolved]
  - Pain [Unknown]
  - Bone graft [None]
  - Haemorrhage [Unknown]
  - Fall [Recovered/Resolved]
  - Wound [Unknown]
  - Headache [Recovered/Resolved]
  - Erythema [Recovering/Resolving]
  - Dizziness [Unknown]
  - Muscle strain [Unknown]
  - Discomfort [Unknown]
  - Abdominal pain upper [Unknown]
  - Syncope [Recovered/Resolved]
  - Tonsillitis [Unknown]
  - Neck pain [Unknown]
  - Malaise [Unknown]
  - Dizziness [Unknown]
  - Head injury [Recovering/Resolving]
  - Nasal septum deviation [Recovered/Resolved]
  - Tympanic membrane perforation [Unknown]
  - Wound complication [None]
  - Multiple fractures [Recovered/Resolved]
  - Cellulitis [Unknown]
  - Face injury [Recovered/Resolved]
  - Swelling [Recovered/Resolved]
  - Diarrhoea [Recovered/Resolved]
  - Loss of consciousness [Recovered/Resolved]
  - Macrocytosis [Unknown]
  - Scar [Unknown]
  - Deformity [Unknown]

NARRATIVE: CASE EVENT DATE: 201412
